APPROVED DRUG PRODUCT: CEFUROXIME SODIUM
Active Ingredient: CEFUROXIME SODIUM
Strength: EQ 7.5GM BASE/VIAL
Dosage Form/Route: INJECTABLE;INJECTION
Application: A064191 | Product #001
Applicant: TEVA PHARMACEUTICALS USA
Approved: Apr 16, 1998 | RLD: No | RS: No | Type: DISCN